FAERS Safety Report 6172850-5 (Version None)
Quarter: 2009Q2

REPORT INFORMATION
  Report Type: 
  Country: None (occurrence: None)
  Receive Date: 20090428
  Receipt Date: 20090414
  Transmission Date: 20091009
  Serious: Yes (Hospitalization)
  Sender: FDA-Public Use
  Company Number: 2009-01482

PATIENT
  Age: 61 Year
  Sex: Male

DRUGS (9)
  1. VELCADE [Suspect]
     Indication: MULTIPLE MYELOMA
     Dosage: 3.5 MG, INTRAVENOUS
     Route: 042
     Dates: start: 20090209, end: 20090216
  2. TAZOCILLINE(PIPERACILLIN SODIUM, TAZOBACTAM SODIUM) INFUSION [Suspect]
     Indication: DRUG USE FOR UNKNOWN INDICATION
  3. OFLOXACIN [Suspect]
     Indication: DRUG USE FOR UNKNOWN INDICATION
  4. VALACYCLOVIR [Suspect]
     Indication: DRUG USE FOR UNKNOWN INDICATION
  5. PANTOPRAZOLE SODIUM [Suspect]
     Indication: DRUG USE FOR UNKNOWN INDICATION
  6. CALCIDOSE(CALCIUM CARBOANTE) [Suspect]
     Indication: DRUG USE FOR UNKNOWN INDICATION
  7. FOLIC ACID [Suspect]
     Indication: DRUG USE FOR UNKNOWN INDICATION
  8. HEPARIN-FRACTION, CALCIUM SALT(HEPARIN-FRACTION, CALCIUM SALT) INJECTI [Suspect]
     Indication: DRUG USE FOR UNKNOWN INDICATION
  9. LASIX [Suspect]
     Indication: DRUG USE FOR UNKNOWN INDICATION

REACTIONS (3)
  - ENCEPHALOPATHY [None]
  - MYOCLONUS [None]
  - TUMOUR LYSIS SYNDROME [None]
